FAERS Safety Report 12318692 (Version 4)
Quarter: 2016Q3

REPORT INFORMATION
  Report Type: Report from Study
  Country: US (occurrence: US)
  Receive Date: 20160429
  Receipt Date: 20160718
  Transmission Date: 20161109
  Serious: Yes (Other)
  Sender: FDA-Public Use
  Company Number: US-BAYER-2016-077524

PATIENT
  Age: 57 Year
  Sex: Male

DRUGS (5)
  1. NEXAVAR [Suspect]
     Active Substance: SORAFENIB
     Indication: HEPATOCELLULAR CARCINOMA
     Dosage: 200 MG, QD
     Route: 048
     Dates: start: 20160504
  2. LACTOFERMENT [LACTOBACILLUS NOS] [Concomitant]
  3. NEXAVAR [Suspect]
     Active Substance: SORAFENIB
     Indication: HEPATOCELLULAR CARCINOMA
     Dosage: 200 MG, BID
     Route: 048
     Dates: start: 20160317, end: 201603
  4. DIPHENOXYLATE [Concomitant]
     Active Substance: DIPHENOXYLATE
  5. OXYCODONE [Concomitant]
     Active Substance: OXYCODONE
     Dosage: 200 MG, QD
     Route: 048
     Dates: start: 20160504

REACTIONS (13)
  - Fatigue [Not Recovered/Not Resolved]
  - Abdominal pain [None]
  - Abdominal discomfort [Recovering/Resolving]
  - Dizziness [None]
  - Breath sounds abnormal [None]
  - Muscle spasms [None]
  - Diarrhoea [Recovered/Resolved]
  - Hypertension [Recovering/Resolving]
  - Abdominal rigidity [None]
  - Erectile dysfunction [None]
  - Abdominal distension [None]
  - Abdominal pain [None]
  - Headache [None]

NARRATIVE: CASE EVENT DATE: 201604
